FAERS Safety Report 8135017-7 (Version None)
Quarter: 2012Q1

REPORT INFORMATION
  Report Type: 
  Country: None (occurrence: None)
  Receive Date: 20120214
  Receipt Date: 20120209
  Transmission Date: 20120608
  Serious: Yes (Death, Hospitalization)
  Sender: FDA-Public Use
  Company Number: FR-ASTELLAS-2012US001709

PATIENT
  Sex: Female
  Weight: 59 kg

DRUGS (3)
  1. LEVOFLOXACIN [Concomitant]
     Indication: LUNG INFECTION
     Dosage: UNK
     Route: 065
  2. ROCEPHIN [Concomitant]
     Indication: LUNG INFECTION
     Dosage: UNK
     Route: 065
     Dates: start: 20120101
  3. ERLOTINIB HYDROCHLORIDE [Suspect]
     Indication: LUNG NEOPLASM MALIGNANT
     Dosage: 150 MG, UNKNOWN/D
     Route: 048
     Dates: start: 20111123

REACTIONS (1)
  - LUNG INFECTION [None]
